FAERS Safety Report 6633827-6 (Version None)
Quarter: 2010Q1

REPORT INFORMATION
  Report Type: 
  Country: None (occurrence: None)
  Receive Date: 20100315
  Receipt Date: 20100302
  Transmission Date: 20100710
  Serious: Yes (Other)
  Sender: FDA-Public Use
  Company Number: US-JNJFOC-20100202472

PATIENT
  Age: 68 Year
  Sex: Male

DRUGS (3)
  1. TYLENOL [Suspect]
  2. TYLENOL [Suspect]
     Indication: DRUG USE FOR UNKNOWN INDICATION
  3. ROLAIDS [Concomitant]
     Indication: HYPERCHLORHYDRIA
     Dosage: 2-4 DAILY FOR YEARS

REACTIONS (8)
  - CORONARY ARTERY BYPASS [None]
  - EYE OPERATION [None]
  - INFLUENZA LIKE ILLNESS [None]
  - LUNG NEOPLASM MALIGNANT [None]
  - MYOCARDIAL INFARCTION [None]
  - NAUSEA [None]
  - PRODUCT ODOUR ABNORMAL [None]
  - SURGERY [None]
